FAERS Safety Report 20676453 (Version 1)
Quarter: 2022Q2

REPORT INFORMATION
  Report Type: Report from Study
  Country: US (occurrence: US)
  Receive Date: 20220405
  Receipt Date: 20220405
  Transmission Date: 20220721
  Serious: Yes (Other)
  Sender: FDA-Public Use
  Company Number: US-ABBVIE-22K-163-4344365-00

PATIENT
  Age: 54 Year
  Sex: Female

DRUGS (1)
  1. IMBRUVICA [Suspect]
     Active Substance: IBRUTINIB
     Indication: Chronic lymphocytic leukaemia
     Route: 048
     Dates: start: 20210916

REACTIONS (4)
  - Hysterectomy [Unknown]
  - Fatigue [Unknown]
  - Asthenia [Recovering/Resolving]
  - Urinary tract infection fungal [Unknown]

NARRATIVE: CASE EVENT DATE: 20220307
